FAERS Safety Report 19644180 (Version 6)
Quarter: 2022Q1

REPORT INFORMATION
  Report Type: Report from Study
  Country: US (occurrence: US)
  Receive Date: 20210801
  Receipt Date: 20220328
  Transmission Date: 20220423
  Serious: Yes (Other)
  Sender: FDA-Public Use
  Company Number: NVSC2021US169649

PATIENT
  Sex: Female

DRUGS (1)
  1. ENTRESTO [Suspect]
     Active Substance: SACUBITRIL\VALSARTAN
     Indication: Hypertension
     Dosage: 200 MG
     Route: 065

REACTIONS (4)
  - Squamous cell carcinoma of skin [Unknown]
  - Pruritus [Unknown]
  - Scratch [Recovering/Resolving]
  - Product use in unapproved indication [Unknown]
